FAERS Safety Report 8846357 (Version 1)
Quarter: 2012Q4

REPORT INFORMATION
  Report Type: 
  Country: US (occurrence: US)
  Receive Date: 20121018
  Receipt Date: 20121018
  Transmission Date: 20130627
  Serious: No
  Sender: FDA-Public Use
  Company Number: US-BIOGENIDEC-2012BI044048

PATIENT
  Sex: Female

DRUGS (7)
  1. TYSABRI [Suspect]
     Indication: MULTIPLE SCLEROSIS
     Route: 042
     Dates: start: 20080401, end: 20080819
  2. TYSABRI [Suspect]
     Indication: MULTIPLE SCLEROSIS
     Route: 042
     Dates: start: 20120118
  3. AVONEX [Concomitant]
     Indication: MULTIPLE SCLEROSIS
     Route: 030
     Dates: start: 20070613
  4. ANTI DEPRESSANT [Concomitant]
     Indication: DEPRESSION
  5. ANXIETY MEDICATION (NOS) [Concomitant]
     Indication: ANXIETY
  6. PREDNISONE [Concomitant]
     Indication: DERMATITIS ALLERGIC
  7. PREDNISONE [Concomitant]
     Indication: BLOOD DISORDER

REACTIONS (3)
  - Gait disturbance [Unknown]
  - Cognitive disorder [Unknown]
  - Urinary tract infection [Recovered/Resolved]
